FAERS Safety Report 10473480 (Version 2)
Quarter: 2014Q4

REPORT INFORMATION
  Report Type: Report from Study
  Country: US (occurrence: US)
  Receive Date: 20140924
  Receipt Date: 20141003
  Transmission Date: 20150528
  Serious: Yes (Death, Hospitalization, Other)
  Sender: FDA-Public Use
  Company Number: PHEH2014US019059

PATIENT
  Sex: Male

DRUGS (1)
  1. TOBI [Suspect]
     Active Substance: TOBRAMYCIN
     Indication: CYSTIC FIBROSIS
     Dosage: 300 UKN, BID
     Route: 055
     Dates: start: 20120507

REACTIONS (3)
  - Staphylococcal infection [Fatal]
  - Septic shock [Fatal]
  - Sarcoidosis [Unknown]
